FAERS Safety Report 9519714 (Version 1)
Quarter: 2013Q3

REPORT INFORMATION
  Report Type: Spontaneous
  Country: US (occurrence: None)
  Receive Date: 20130911
  Receipt Date: 20130911
  Transmission Date: 20140515
  Serious: No
  Sender: FDA-Public Use
  Company Number: None

PATIENT
  Age: 46 Year
  Sex: Male
  Weight: 95.26 kg

DRUGS (3)
  1. ZOCOR 20MG GENERIC [Suspect]
     Indication: EMBOLIC STROKE
     Dosage: 1  QD  ORAL
     Route: 048
     Dates: start: 20110426, end: 20130901
  2. SYNTHROID [Concomitant]
  3. XARELTO [Concomitant]

REACTIONS (1)
  - Blood creatine phosphokinase increased [None]
